FAERS Safety Report 8832356 (Version 9)
Quarter: 2013Q2

REPORT INFORMATION
  Report Type: Spontaneous
  Country: US (occurrence: US)
  Receive Date: 20121009
  Receipt Date: 20130425
  Transmission Date: 20140414
  Serious: Yes (Other)
  Sender: FDA-Public Use
  Company Number: US-009507513-1210USA000331

PATIENT
  Age: 17 Year
  Sex: Female
  Weight: 156 kg

DRUGS (4)
  1. IMPLANON [Suspect]
     Indication: CONTRACEPTION
     Dosage: UNK
     Dates: start: 2009, end: 20130322
  2. ABILIFY [Concomitant]
  3. LEXAPRO [Concomitant]
  4. PRAZOSIN [Concomitant]

REACTIONS (8)
  - Device difficult to use [Recovered/Resolved]
  - Device difficult to use [Recovered/Resolved]
  - Device difficult to use [Recovered/Resolved]
  - Metrorrhagia [Not Recovered/Not Resolved]
  - Amenorrhoea [Unknown]
  - Device deployment issue [Unknown]
  - Medical device complication [Unknown]
  - Inappropriate schedule of drug administration [Unknown]
